FAERS Safety Report 9281567 (Version 2)
Quarter: 2013Q2

REPORT INFORMATION
  Report Type: Report from Study
  Country: US (occurrence: US)
  Receive Date: 20130509
  Receipt Date: 20130517
  Transmission Date: 20140414
  Serious: Yes (Hospitalization)
  Sender: FDA-Public Use
  Company Number: US-US-EMD SERONO, INC.-7209377

PATIENT
  Age: 40 Year
  Sex: Female
  Weight: 103 kg

DRUGS (5)
  1. REBIF [Suspect]
     Indication: MULTIPLE SCLEROSIS
     Route: 058
     Dates: start: 20111019, end: 20130306
  2. REBIF [Suspect]
     Route: 058
     Dates: start: 20130311
  3. HUMALOG                            /00030501/ [Concomitant]
     Indication: DIABETES MELLITUS
  4. LANTUS [Concomitant]
     Indication: DIABETES MELLITUS
  5. DIOVAN                             /01319601/ [Concomitant]
     Indication: HYPERTENSION

REACTIONS (2)
  - Myocardial infarction [Recovered/Resolved]
  - Hypersomnia [Not Recovered/Not Resolved]
